FAERS Safety Report 5047105-2 (Version None)
Quarter: 2006Q3

REPORT INFORMATION
  Report Type: 
  Country: None (occurrence: None)
  Receive Date: 20060703
  Receipt Date: 20060623
  Transmission Date: 20061208
  Serious: Yes (Hospitalization)
  Sender: FDA-Public Use
  Company Number: 233978K06USA

PATIENT
  Sex: Female

DRUGS (3)
  1. REBIF [Suspect]
     Indication: MULTIPLE SCLEROSIS
     Dosage: 44 MCG, 3 IN 1 WEEKS, SUBCUTANEOUS
     Route: 058
     Dates: start: 20030101, end: 20051201
  2. BLOOD PRESSURE MEDICATION [Concomitant]
  3. INSULIN (INSULIN /00030501/) [Concomitant]

REACTIONS (2)
  - INJECTION SITE INFECTION [None]
  - INJECTION SITE PAIN [None]
